FAERS Safety Report 15331865 (Version 3)
Quarter: 2018Q4

REPORT INFORMATION
  Report Type: Not Available
  Country: US (occurrence: US)
  Receive Date: 20180829
  Receipt Date: 20181112
  Transmission Date: 20190204
  Serious: Yes (Hospitalization)
  Sender: FDA-Public Use
  Company Number: US-NEUROCRINE BIOSCIENCES INC.-2018NBI02592

PATIENT
  Age: 26 Year
  Sex: Male

DRUGS (24)
  1. ACETAMINOPHEN. [Concomitant]
     Active Substance: ACETAMINOPHEN
  2. CALCIUM CARBONATE ANTACID [Concomitant]
  3. CEROVITE JR [Concomitant]
  4. MILK OF MAGNESIA [Concomitant]
     Active Substance: MAGNESIUM HYDROXIDE
  5. BACITRACIN ZINC. [Concomitant]
     Active Substance: BACITRACIN ZINC
  6. FEXOFENADINE HYDROCHLORIDE. [Concomitant]
     Active Substance: FEXOFENADINE HYDROCHLORIDE
  7. PANTOPRAZOLE [Concomitant]
     Active Substance: PANTOPRAZOLE
  8. TRIAMCINOLONE [Concomitant]
     Active Substance: TRIAMCINOLONE
  9. VENTOLIN [Concomitant]
     Active Substance: ALBUTEROL SULFATE
  10. VITAMIN E [Concomitant]
     Active Substance: .ALPHA.-TOCOPHEROL
  11. ASPIRIN 81 [Concomitant]
     Active Substance: ASPIRIN
  12. BANOPHEN [Concomitant]
     Active Substance: DIPHENHYDRAMINE HYDROCHLORIDE
  13. BISACODYL EC [Concomitant]
     Active Substance: BISACODYL
  14. CLOTRIMAZOLE AF [Concomitant]
  15. DOK [Concomitant]
     Active Substance: DOCUSATE SODIUM
  16. LOPERAMIDE [Concomitant]
     Active Substance: LOPERAMIDE
  17. MINTOX MAXIMUM STRENGTH [Concomitant]
     Active Substance: ALUMINUM HYDROXIDE\DIMETHICONE\MAGNESIUM HYDROXIDE
  18. TRIHEXYPHENIDYL [Concomitant]
     Active Substance: TRIHEXYPHENIDYL
  19. VITAMIN B12 [Concomitant]
     Active Substance: CYANOCOBALAMIN
  20. INGREZZA [Suspect]
     Active Substance: VALBENAZINE
     Indication: DYSKINESIA
     Route: 048
     Dates: start: 20180117, end: 201806
  21. INGREZZA [Suspect]
     Active Substance: VALBENAZINE
     Dosage: AT BEDTIME
     Dates: start: 201810
  22. BISMATROL [Concomitant]
     Active Substance: BISMUTH SUBSALICYLATE
  23. IBUPROFEN. [Concomitant]
     Active Substance: IBUPROFEN
  24. SEROQUEL [Concomitant]
     Active Substance: QUETIAPINE FUMARATE

REACTIONS (1)
  - Hospitalisation [Recovered/Resolved]

NARRATIVE: CASE EVENT DATE: 20180603
